FAERS Safety Report 8299491-8 (Version None)
Quarter: 2012Q2

REPORT INFORMATION
  Report Type: 
  Country: None (occurrence: None)
  Receive Date: 20120419
  Receipt Date: 20120417
  Transmission Date: 20120825
  Serious: No
  Sender: FDA-Public Use
  Company Number: US-TEVA-331644USA

PATIENT
  Sex: Female

DRUGS (4)
  1. COPAXONE [Suspect]
     Indication: MULTIPLE SCLEROSIS
     Dosage: 20 MILLIGRAM;
     Route: 058
     Dates: start: 20080101
  2. BETASERON [Suspect]
     Dates: start: 19990101
  3. HYDROCHLOROTHIAZIDE [Concomitant]
     Dosage: 25 ;
     Route: 048
  4. ATENOLOL [Concomitant]
     Dosage: 25 MILLIGRAM;
     Route: 048

REACTIONS (1)
  - LIVER FUNCTION TEST ABNORMAL [None]
